FAERS Safety Report 10087095 (Version 1)
Quarter: 2014Q2

REPORT INFORMATION
  Report Type: Spontaneous
  Country: US (occurrence: US)
  Receive Date: 20140418
  Receipt Date: 20140418
  Transmission Date: 20141212
  Serious: No
  Sender: FDA-Public Use
  Company Number: US-UPSHER-SMITH LABORATORIES, INC.-13003367

PATIENT
  Age: 40 Year
  Sex: Female

DRUGS (6)
  1. PREVALITE [Suspect]
     Indication: DIARRHOEA
     Dosage: 4 G, QD
     Route: 048
     Dates: start: 1994
  2. ALLEGRA                            /01314201/ [Concomitant]
     Dosage: UNK
  3. FLUTICASONE [Concomitant]
     Dosage: UNK
  4. CHROMIUM [Concomitant]
     Dosage: UNK
  5. CALCIUM +D [Concomitant]
     Dosage: UNK
  6. VITAMIN D                          /00107901/ [Concomitant]
     Dosage: UNK

REACTIONS (3)
  - Paraesthesia [Not Recovered/Not Resolved]
  - Oedema peripheral [Not Recovered/Not Resolved]
  - Vitamin B12 decreased [Recovered/Resolved]
